FAERS Safety Report 21239804 (Version 2)
Quarter: 2022Q4

REPORT INFORMATION
  Report Type: Spontaneous
  Country: US (occurrence: US)
  Receive Date: 20220822
  Receipt Date: 20221025
  Transmission Date: 20230112
  Serious: Yes (Hospitalization, Disabling, Other)
  Sender: FDA-Public Use
  Company Number: US-BRISTOL-MYERS SQUIBB COMPANY-2022-088243

PATIENT
  Age: 69 Year
  Sex: Male

DRUGS (1)
  1. ZEPOSIA [Suspect]
     Active Substance: OZANIMOD HYDROCHLORIDE
     Indication: Product used for unknown indication
     Dosage: DOSE : ONE CAPSULE;     FREQ : QD
     Route: 048

REACTIONS (7)
  - Spinal disorder [Unknown]
  - Colitis ulcerative [Unknown]
  - Pharyngeal pouch [Unknown]
  - Dysphagia [Unknown]
  - Crohn^s disease [Unknown]
  - Abscess [Unknown]
  - Infected fistula [Unknown]

NARRATIVE: CASE EVENT DATE: 20220101
